FAERS Safety Report 9785887 (Version 3)
Quarter: 2014Q2

REPORT INFORMATION
  Report Type: Spontaneous
  Country: US (occurrence: US)
  Receive Date: 20131227
  Receipt Date: 20140513
  Transmission Date: 20141212
  Serious: Yes (Other)
  Sender: FDA-Public Use
  Company Number: US-JNJFOC-20131210434

PATIENT
  Sex: Male
  Weight: 106.6 kg

DRUGS (4)
  1. STELARA [Suspect]
     Indication: PSORIASIS
     Dosage: ONCE EVERY FOUR OR SIX MONTHS
     Route: 058
     Dates: start: 20120925
  2. AMLODIPINE BESYLATE [Concomitant]
     Indication: HYPERTENSION
     Dosage: IN MORNING
     Route: 048
  3. ASPIRIN [Concomitant]
     Indication: ANTICOAGULANT THERAPY
     Dosage: LOW DOSE
     Route: 048
  4. AZITHROMYCIN [Concomitant]
     Route: 065

REACTIONS (15)
  - Bronchitis [Unknown]
  - Pneumonia [Unknown]
  - Asthma [Not Recovered/Not Resolved]
  - Diabetes mellitus [Not Recovered/Not Resolved]
  - Joint crepitation [Recovering/Resolving]
  - Meniscus injury [Recovering/Resolving]
  - Dizziness [Recovered/Resolved]
  - Asthenia [Recovering/Resolving]
  - Chronic pigmented purpura [Unknown]
  - Arthralgia [Recovering/Resolving]
  - Cartilage atrophy [Recovering/Resolving]
  - Intentional product misuse [Not Recovered/Not Resolved]
  - Decreased immune responsiveness [Not Recovered/Not Resolved]
  - Therapeutic response changed [Unknown]
  - Mycobacterium avium complex infection [Recovered/Resolved]
